FAERS Safety Report 8943945 (Version 1)
Quarter: 2012Q4

REPORT INFORMATION
  Report Type: 
  Country: NA (occurrence: NA)
  Receive Date: 20121204
  Receipt Date: 20121204
  Transmission Date: 20130627
  Serious: Yes (Other)
  Sender: FDA-Public Use
  Company Number: NA-PFIZER INC-2012303019

PATIENT

DRUGS (1)
  1. EPANUTIN [Suspect]
     Dosage: 100 mg, UNK
     Route: 048

REACTIONS (3)
  - Product quality issue [Unknown]
  - Convulsion [Unknown]
  - Product packaging issue [None]
